FAERS Safety Report 7331300-3 (Version None)
Quarter: 2011Q1

REPORT INFORMATION
  Report Type: 
  Country: None (occurrence: None)
  Receive Date: 20110303
  Receipt Date: 20110303
  Transmission Date: 20110831
  Serious: Yes (Other)
  Sender: FDA-Public Use
  Company Number: None

PATIENT
  Age: 53 Year
  Sex: Female
  Weight: 68.9467 kg

DRUGS (2)
  1. COPAXONE [Suspect]
     Indication: MULTIPLE SCLEROSIS
     Dosage: 1ML DAILY SQ
     Route: 058
     Dates: start: 20090220, end: 20101207
  2. TRIAD PAD 1 PAD TRIAD DISPOSABLES, INC. [Suspect]
     Indication: MULTIPLE SCLEROSIS
     Dosage: 1 PAD DAILY TOP
     Route: 061
     Dates: start: 20090220, end: 20101207

REACTIONS (2)
  - ANAPHYLACTIC SHOCK [None]
  - PRODUCT QUALITY ISSUE [None]
